FAERS Safety Report 12780986 (Version 2)
Quarter: 2016Q4

REPORT INFORMATION
  Report Type: Report from Study
  Country: JP (occurrence: JP)
  Receive Date: 20160926
  Receipt Date: 20161130
  Transmission Date: 20170207
  Serious: Yes (Hospitalization)
  Sender: FDA-Public Use
  Company Number: JP-OTSUKA-2016_011946

PATIENT
  Age: 52 Year
  Sex: Male
  Weight: 65.1 kg

DRUGS (1)
  1. TOLVAPTAN [Suspect]
     Active Substance: TOLVAPTAN
     Indication: CONGENITAL CYSTIC KIDNEY DISEASE
     Dosage: 60MG/DAY, DAILY DOSE (DIVIDED INTO 2 DOSES)
     Route: 048
     Dates: start: 20150625, end: 20160527

REACTIONS (5)
  - Hepatic function abnormal [Recovered/Resolved]
  - Haematuria [Recovering/Resolving]
  - Dizziness [Recovered/Resolved]
  - Renal pain [Recovered/Resolved]
  - Pyrexia [Recovered/Resolved]

NARRATIVE: CASE EVENT DATE: 20150707
